FAERS Safety Report 5256733-0 (Version None)
Quarter: 2007Q1

REPORT INFORMATION
  Report Type: 
  Country: None (occurrence: None)
  Receive Date: 20070306
  Receipt Date: 20070222
  Transmission Date: 20070707
  Serious: Yes (Other)
  Sender: FDA-Public Use
  Company Number: GB-PFIZER INC-2007014829

PATIENT
  Age: 33 Year
  Sex: Female

DRUGS (3)
  1. AZITHROMYCIN [Suspect]
     Dosage: DAILY DOSE:1GRAM
  2. FOLIC ACID [Concomitant]
  3. IRON [Concomitant]

REACTIONS (2)
  - ABDOMINAL PAIN [None]
  - INTRA-UTERINE DEATH [None]
